FAERS Safety Report 10540008 (Version 1)
Quarter: 2014Q4

REPORT INFORMATION
  Report Type: Spontaneous
  Country: US (occurrence: None)
  Receive Date: 20141023
  Receipt Date: 20141023
  Transmission Date: 20150529
  Serious: Yes (Disabling)
  Sender: FDA-Public Use
  Company Number: None

PATIENT
  Age: 61 Year
  Sex: Female
  Weight: 89.43 kg

DRUGS (17)
  1. EFFEXOR XR [Suspect]
     Active Substance: VENLAFAXINE HYDROCHLORIDE
  2. LIPITOR [Suspect]
     Active Substance: ATORVASTATIN CALCIUM
  3. TOPROL XL [Suspect]
     Active Substance: METOPROLOL SUCCINATE
  4. ZOCOR [Suspect]
     Active Substance: SIMVASTATIN
  5. TRAMADOL [Suspect]
     Active Substance: TRAMADOL
  6. PAXIL [Suspect]
     Active Substance: PAROXETINE HYDROCHLORIDE
  7. METOPROLOL [Suspect]
     Active Substance: METOPROLOL
  8. CRESTOR [Suspect]
     Active Substance: ROSUVASTATIN CALCIUM
  9. ASPIRIN. [Suspect]
     Active Substance: ASPIRIN
  10. WELCHOL [Suspect]
     Active Substance: COLESEVELAM HYDROCHLORIDE
  11. DIOVAN [Suspect]
     Active Substance: VALSARTAN
     Indication: CARDIAC DISORDER
     Route: 048
     Dates: start: 1992, end: 201406
  12. RELAFEN [Suspect]
     Active Substance: NABUMETONE
  13. METFORMIN [Suspect]
     Active Substance: METFORMIN HYDROCHLORIDE
  14. ZESTRIL [Suspect]
     Active Substance: LISINOPRIL
  15. VASOTEC [Suspect]
     Active Substance: ENALAPRIL MALEATE
  16. ISOSORBIDE [Suspect]
     Active Substance: ISOSORBIDE
  17. IMDUR [Suspect]
     Active Substance: ISOSORBIDE MONONITRATE

REACTIONS (15)
  - Mood altered [None]
  - Skin discolouration [None]
  - Neuropathy peripheral [None]
  - Urticaria [None]
  - Malaise [None]
  - Pruritus [None]
  - Ulcer [None]
  - Sexually transmitted disease [None]
  - Neuralgia [None]
  - Muscular weakness [None]
  - Pain [None]
  - Infection [None]
  - Visual impairment [None]
  - Arthralgia [None]
  - Weight increased [None]

NARRATIVE: CASE EVENT DATE: 20130417
